FAERS Safety Report 23813366 (Version 1)
Quarter: 2024Q2

REPORT INFORMATION
  Report Type: Spontaneous
  Country: CN (occurrence: CN)
  Receive Date: 20240503
  Receipt Date: 20240503
  Transmission Date: 20240715
  Serious: Yes (Other)
  Sender: FDA-Public Use
  Company Number: CN-STRIDES ARCOLAB LIMITED-2024SP005117

PATIENT
  Age: 78 Year
  Sex: Female

DRUGS (1)
  1. PREDNISOLONE [Suspect]
     Active Substance: PREDNISOLONE
     Indication: Idiopathic pulmonary fibrosis
     Dosage: UNK
     Route: 065

REACTIONS (2)
  - Idiopathic pulmonary fibrosis [Recovered/Resolved]
  - Drug ineffective [Unknown]
